FAERS Safety Report 11109084 (Version 1)
Quarter: 2015Q2

REPORT INFORMATION
  Report Type: Spontaneous
  Country: US (occurrence: US)
  Receive Date: 20150513
  Receipt Date: 20150513
  Transmission Date: 20150821
  Serious: No
  Sender: FDA-Public Use
  Company Number: US-009507513-1504USA014795

PATIENT
  Sex: Female

DRUGS (2)
  1. NUVARING [Suspect]
     Active Substance: ETHINYL ESTRADIOL\ETONOGESTREL
     Dosage: 1 RING CONTINUOUSLY FOR 3 WEEKS FOLLOWED BY A 1 WEEK RING FREE INTERVAL
     Route: 067
     Dates: end: 2011
  2. NUVARING [Suspect]
     Active Substance: ETHINYL ESTRADIOL\ETONOGESTREL
     Indication: CONTRACEPTION
     Dosage: 1 RING CONTINUOUSLY FOR 3 WEEKS FOLLOWED BY A 1 WEEK RING FREE INTERVAL
     Route: 067
     Dates: start: 2013

REACTIONS (2)
  - Abdominal distension [Unknown]
  - Swelling [Unknown]

NARRATIVE: CASE EVENT DATE: 2015
